FAERS Safety Report 14673297 (Version 1)
Quarter: 2018Q1

REPORT INFORMATION
  Report Type: Spontaneous
  Country: PT (occurrence: PT)
  Receive Date: 20180323
  Receipt Date: 20180323
  Transmission Date: 20180509
  Serious: Yes (Other)
  Sender: FDA-Public Use
  Company Number: PT-WEST-WARD PHARMACEUTICALS CORP.-PT-H14001-18-02098

PATIENT
  Sex: Female

DRUGS (11)
  1. TRASTUZUMAB EMTANSINE [Suspect]
     Active Substance: ADO-TRASTUZUMAB EMTANSINE
     Route: 042
     Dates: start: 201210, end: 201506
  2. TRASTUZUMAB. [Suspect]
     Active Substance: TRASTUZUMAB
     Indication: INVASIVE DUCTAL BREAST CARCINOMA
     Dosage: LOADING DOSE - 520 MG; MAINTENANCE DOSE: 390 MG ()
     Route: 042
     Dates: start: 201210, end: 201506
  3. ZOLEDRONIC ACID [Suspect]
     Active Substance: ZOLEDRONIC ACID
     Indication: INVASIVE DUCTAL BREAST CARCINOMA
     Dosage: ()
     Route: 065
     Dates: start: 201210, end: 201306
  4. LAPATINIB [Suspect]
     Active Substance: LAPATINIB
     Indication: INVASIVE DUCTAL BREAST CARCINOMA
     Dosage: ()
     Route: 065
     Dates: start: 201508, end: 201604
  5. LETROZOL [Suspect]
     Active Substance: LETROZOLE
     Indication: INVASIVE DUCTAL BREAST CARCINOMA
     Dosage: ()
     Route: 065
     Dates: start: 201210, end: 201506
  6. METFORMIN [Concomitant]
     Active Substance: METFORMIN HYDROCHLORIDE
     Indication: PRODUCT USED FOR UNKNOWN INDICATION
     Dosage: ()
     Route: 065
  7. TRASTUZUMAB EMTANSINE [Suspect]
     Active Substance: ADO-TRASTUZUMAB EMTANSINE
     Indication: INVASIVE DUCTAL BREAST CARCINOMA
     Route: 042
     Dates: start: 201604, end: 201710
  8. TEMOZOLOMIDE. [Suspect]
     Active Substance: TEMOZOLOMIDE
     Indication: INVASIVE DUCTAL BREAST CARCINOMA
     Dosage: ()
     Route: 065
     Dates: start: 201504
  9. CAPECITABINE. [Suspect]
     Active Substance: CAPECITABINE
     Indication: INVASIVE DUCTAL BREAST CARCINOMA
     Dosage: ()
     Route: 065
     Dates: start: 201508, end: 201604
  10. GADOLINIUM [Suspect]
     Active Substance: GADOLINIUM
     Indication: PRODUCT USED FOR UNKNOWN INDICATION
     Dosage: ()
     Route: 065
     Dates: start: 201504
  11. DENOSUMAB [Suspect]
     Active Substance: DENOSUMAB
     Indication: INVASIVE DUCTAL BREAST CARCINOMA
     Dosage: ()
     Route: 065
     Dates: start: 201306

REACTIONS (5)
  - Thrombocytopenia [Recovered/Resolved]
  - Neutropenia [Recovered/Resolved]
  - Pyrexia [Unknown]
  - Pain [Unknown]
  - Lung infiltration [Unknown]

NARRATIVE: CASE EVENT DATE: 201306
